FAERS Safety Report 8877160 (Version 1)
Quarter: 2012Q4

REPORT INFORMATION
  Report Type: Spontaneous
  Country: US (occurrence: None)
  Receive Date: 20121026
  Receipt Date: 20121026
  Transmission Date: 20130627
  Serious: Yes (Other)
  Sender: FDA-Public Use
  Company Number: FK201203158

PATIENT
  Age: 50 Year
  Sex: Male

DRUGS (5)
  1. HEPARIN [Suspect]
     Indication: RENAL TRANSPLANT
     Dosage: 80 IU/kg, Per hour infusion
     Route: 040
  2. HEPARIN [Suspect]
     Indication: RENAL TRANSPLANT
     Dosage: 18 IU/kg, Per hour infusion
     Route: 042
  3. ALEMTUZUMAB [Concomitant]
  4. COUMADIN (WARFARIN SODIUM) [Concomitant]
  5. ARGATROBAN [Concomitant]

REACTIONS (5)
  - Renal graft loss [None]
  - Heparin-induced thrombocytopenia [None]
  - Renal artery thrombosis [None]
  - Pulmonary embolism [None]
  - Deep vein thrombosis [None]
